FAERS Safety Report 24438676 (Version 1)
Quarter: 2024Q4

REPORT INFORMATION
  Report Type: Spontaneous
  Country: US (occurrence: US)
  Receive Date: 20241015
  Receipt Date: 20241015
  Transmission Date: 20250114
  Serious: Yes (Other)
  Sender: SANOFI AVENTIS
  Company Number: US-SA-2024SA295150

PATIENT
  Age: 65 Year
  Sex: Male

DRUGS (1)
  1. DUPIXENT [Suspect]
     Active Substance: DUPILUMAB
     Dosage: UNK UNK, QOW
     Route: 058

REACTIONS (9)
  - Renal impairment [Unknown]
  - Fatigue [Unknown]
  - Influenza [Unknown]
  - Asthenia [Unknown]
  - Eye disorder [Unknown]
  - Abdominal pain [Unknown]
  - Musculoskeletal discomfort [Unknown]
  - Insomnia [Unknown]
  - Arthralgia [Unknown]
